FAERS Safety Report 8809065 (Version 1)
Quarter: 2012Q4

REPORT INFORMATION
  Report Type: Spontaneous
  Country: US (occurrence: None)
  Receive Date: 20120921
  Receipt Date: 20120921
  Transmission Date: 20130627
  Serious: No
  Sender: FDA-Public Use
  Company Number: None

PATIENT
  Age: 58 Year
  Sex: Female
  Weight: 82.56 kg

DRUGS (1)
  1. LANSOPRAZOLE [Suspect]
     Indication: ESOPHAGEAL REFLUX
     Dates: start: 201208

REACTIONS (4)
  - Facial pain [None]
  - Ear pain [None]
  - Gingival pain [None]
  - Toothache [None]
